FAERS Safety Report 5020900-1 (Version None)
Quarter: 2006Q2

REPORT INFORMATION
  Report Type: 
  Country: None (occurrence: None)
  Receive Date: 20060602
  Receipt Date: 20060525
  Transmission Date: 20061013
  Serious: Yes (Other)
  Sender: FDA-Public Use
  Company Number: 2006062922

PATIENT
  Age: 16 Year
  Sex: Female
  Weight: 63.5036 kg

DRUGS (3)
  1. ZANTAC 150 [Suspect]
     Indication: GASTROOESOPHAGEAL REFLUX DISEASE
     Dosage: ONE TABLET TWICE DAILY, ORAL
     Route: 048
     Dates: start: 20060327, end: 20060505
  2. ZANTAC 150 [Suspect]
     Indication: HYPERSENSITIVITY
     Dosage: ONE TABLET TWICE DAILY, ORAL
     Route: 048
     Dates: start: 20060327, end: 20060505
  3. TYLENOL SINUS MEDICATION (PARACETAOL, PSEUDOEPHEDRINE HYDROCHLORIDE) [Concomitant]

REACTIONS (1)
  - DEPRESSION [None]
